FAERS Safety Report 7979432-0 (Version None)
Quarter: 2011Q4

REPORT INFORMATION
  Report Type: 
  Country: None (occurrence: None)
  Receive Date: 20111213
  Receipt Date: 20111213
  Transmission Date: 20120403
  Serious: Yes (Hospitalization)
  Sender: FDA-Public Use
  Company Number: None

PATIENT
  Age: 47 Year
  Sex: Male
  Weight: 86.5 kg

DRUGS (1)
  1. PREDNISONE [Suspect]
     Indication: MIGRAINE
     Dosage: 40 MG EVERY DAY PO
     Route: 048
     Dates: start: 20110908, end: 20110912

REACTIONS (3)
  - NAUSEA [None]
  - HYPERGLYCAEMIA [None]
  - VOMITING [None]
